FAERS Safety Report 18898638 (Version 1)
Quarter: 2021Q1

REPORT INFORMATION
  Report Type: Spontaneous
  Country: CN (occurrence: CN)
  Receive Date: 20210216
  Receipt Date: 20210216
  Transmission Date: 20210420
  Serious: Yes (Hospitalization, Other)
  Sender: FDA-Public Use
  Company Number: CN-MACLEODS PHARMACEUTICALS US LTD-MAC2021030141

PATIENT

DRUGS (8)
  1. NIFEDIPINE. [Concomitant]
     Active Substance: NIFEDIPINE
     Dosage: 60 MILLIGRAM, QD, CONTROLLED?RELEASE TABLETS
     Route: 065
  2. NIFEDIPINE. [Concomitant]
     Active Substance: NIFEDIPINE
     Dosage: 30 MILLIGRAM, BID, CONTROLLED?RELEASE TABLETS
     Route: 065
  3. METHYLPREDNISOLONE. [Concomitant]
     Active Substance: METHYLPREDNISOLONE
     Dosage: 28 MILLIGRAM, QD
     Route: 065
  4. METHYLPREDNISOLONE. [Concomitant]
     Active Substance: METHYLPREDNISOLONE
     Indication: PRODUCT USED FOR UNKNOWN INDICATION
     Dosage: 12 MILLIGRAM, QOD
     Route: 065
  5. LOSARTAN POTASSIUM 50 MG TABLET [Suspect]
     Active Substance: LOSARTAN POTASSIUM
     Indication: BLOOD PRESSURE INCREASED
     Dosage: 50 MILLIGRAM, QD
     Route: 065
  6. DIPYRIDAMOLE. [Concomitant]
     Active Substance: DIPYRIDAMOLE
     Indication: PRODUCT USED FOR UNKNOWN INDICATION
     Dosage: 50 MILLIGRAM, QD
     Route: 065
  7. LABETALOL [Concomitant]
     Active Substance: LABETALOL\LABETALOL HYDROCHLORIDE
     Indication: BLOOD PRESSURE INCREASED
     Dosage: 200 MILLIGRAM, BID
     Route: 065
  8. NIFEDIPINE. [Concomitant]
     Active Substance: NIFEDIPINE
     Indication: BLOOD PRESSURE INCREASED
     Dosage: 30 MILLIGRAM, QD, CONTROLLED?RELEASE TABLETS
     Route: 065

REACTIONS (4)
  - Nephrotic syndrome [Unknown]
  - Oligohydramnios [Recovering/Resolving]
  - Exposure during pregnancy [Unknown]
  - Pre-eclampsia [Unknown]
